FAERS Safety Report 6859350-1 (Version None)
Quarter: 2010Q3

REPORT INFORMATION
  Report Type: 
  Country: None (occurrence: None)
  Receive Date: 20100719
  Receipt Date: 20080430
  Transmission Date: 20110219
  Serious: No
  Sender: FDA-Public Use
  Company Number: US-PFIZER INC-2008017992

PATIENT
  Sex: Female
  Weight: 53.5 kg

DRUGS (1)
  1. CHANTIX [Suspect]
     Indication: SMOKING CESSATION THERAPY
     Dates: start: 20080111, end: 20080208

REACTIONS (5)
  - EUPHORIC MOOD [None]
  - FOLATE DEFICIENCY [None]
  - INSOMNIA [None]
  - NAUSEA [None]
  - VOMITING [None]
